FAERS Safety Report 7772776-7 (Version None)
Quarter: 2011Q3

REPORT INFORMATION
  Report Type: 
  Country: None (occurrence: None)
  Receive Date: 20110922
  Receipt Date: 20101020
  Transmission Date: 20111222
  Serious: No
  Sender: FDA-Public Use
  Company Number: US-ASTRAZENECA-2010SE49656

PATIENT
  Age: 84 Year
  Sex: Female
  Weight: 79.8 kg

DRUGS (2)
  1. SEROQUEL XR [Suspect]
     Indication: DEMENTIA WITH LEWY BODIES
     Route: 048
     Dates: start: 20100701
  2. ZOLOFT [Concomitant]
     Indication: DEPRESSION
     Route: 048

REACTIONS (2)
  - HALLUCINATION, VISUAL [None]
  - PARANOIA [None]
